FAERS Safety Report 8355336-9 (Version None)
Quarter: 2012Q2

REPORT INFORMATION
  Report Type: 
  Country: None (occurrence: None)
  Receive Date: 20120511
  Receipt Date: 20110329
  Transmission Date: 20120825
  Serious: No
  Sender: FDA-Public Use
  Company Number: US-TEVA-2011001486

PATIENT
  Sex: Male
  Weight: 68.1 kg

DRUGS (3)
  1. NUVIGIL [Suspect]
     Indication: HYPERSOMNIA
     Dosage: 150 MILLIGRAM;
     Route: 048
  2. LISINOPRIL [Concomitant]
     Dates: start: 20040101
  3. NUVIGIL [Suspect]
     Dosage: 150 MILLIGRAM;
     Route: 048
     Dates: start: 20110325, end: 20110329

REACTIONS (2)
  - HEADACHE [None]
  - DRUG INEFFECTIVE FOR UNAPPROVED INDICATION [None]
